FAERS Safety Report 23745265 (Version 1)
Quarter: 2024Q2

REPORT INFORMATION
  Report Type: Spontaneous
  Country: AU (occurrence: AU)
  Receive Date: 20240416
  Receipt Date: 20240416
  Transmission Date: 20240716
  Serious: Yes (Hospitalization, Other)
  Sender: FDA-Public Use
  Company Number: AU-NOVOPROD-1202176

PATIENT
  Sex: Female

DRUGS (1)
  1. OZEMPIC [Suspect]
     Active Substance: SEMAGLUTIDE
     Indication: Type 2 diabetes mellitus
     Dosage: 1 MG

REACTIONS (5)
  - Thrombosis [Recovering/Resolving]
  - Hepatic infection [Recovering/Resolving]
  - Cholelithiasis [Recovering/Resolving]
  - Pancreatitis [Recovering/Resolving]
  - Constipation [Recovered/Resolved]
